FAERS Safety Report 13383366 (Version 1)
Quarter: 2017Q1

REPORT INFORMATION
  Report Type: Spontaneous
  Country: SE (occurrence: SE)
  Receive Date: 20170329
  Receipt Date: 20170329
  Transmission Date: 20170429
  Serious: Yes (Hospitalization, Other)
  Sender: FDA-Public Use
  Company Number: SE-PFIZER INC-2017128986

PATIENT
  Age: 66 Year
  Sex: Male

DRUGS (20)
  1. PROPAVAN [Concomitant]
     Active Substance: PROPIOMAZINE
     Dosage: UNK
  2. SIMVASTATIN ARROW [Concomitant]
     Active Substance: SIMVASTATIN
     Dosage: UNK
  3. EZETROL [Concomitant]
     Active Substance: EZETIMIBE
     Dosage: UNK
  4. BRICANYL [Concomitant]
     Active Substance: TERBUTALINE SULFATE
     Dosage: UNK
  5. MORFIN MEDA [Concomitant]
     Active Substance: MORPHINE SULFATE
     Dosage: UNK
  6. FURIX [Concomitant]
     Active Substance: FUROSEMIDE
     Dosage: UNK
  7. ZOLEDRONIC ACID ACCORD [Concomitant]
     Dosage: UNK
  8. RAMIPRIL ACTAVIS [Concomitant]
     Active Substance: RAMIPRIL
     Dosage: UNK
  9. STESOLID [Concomitant]
     Active Substance: DIAZEPAM
     Dosage: UNK
  10. VENLAFAXIN RANBAXY [Concomitant]
     Dosage: UNK
  11. DOLCONTIN [Suspect]
     Active Substance: MORPHINE
     Dosage: 180 MG, DAILY
     Route: 048
     Dates: start: 20140417, end: 20150515
  12. COCILLANA-ETYFIN /06573601/ [Concomitant]
     Active Substance: ETHYLMORPHINE HYDROCHLORIDE\HERBALS
     Dosage: UNK
  13. EUSAPRIM FORTE [Concomitant]
     Active Substance: SULFAMETHOXAZOLE\TRIMETHOPRIM
     Dosage: UNK
  14. OMEPRAZOL BMM [Concomitant]
     Dosage: UNK
  15. MIANSERIN MYLAN [Concomitant]
     Active Substance: MIANSERIN
     Dosage: UNK
  16. DOLCONTIN [Suspect]
     Active Substance: MORPHINE
     Indication: MUSCULOSKELETAL PAIN
     Dosage: 30 MG, DAILY
     Route: 048
     Dates: end: 20140416
  17. ATENOLOL ACCORD [Concomitant]
     Dosage: UNK
  18. IMNOVID [Concomitant]
     Active Substance: POMALIDOMIDE
     Dosage: UNK
  19. DEXAMETASON ABCUR [Concomitant]
     Dosage: UNK
  20. PANODIL [Concomitant]
     Active Substance: ACETAMINOPHEN
     Dosage: UNK

REACTIONS (4)
  - Respiratory failure [Unknown]
  - Bradycardia [Unknown]
  - Somnolence [Recovered/Resolved]
  - Fatigue [Recovered/Resolved]

NARRATIVE: CASE EVENT DATE: 20150515
